FAERS Safety Report 4564938-7 (Version None)
Quarter: 2005Q1

REPORT INFORMATION
  Report Type: 
  Country: None (occurrence: None)
  Receive Date: 20050131
  Receipt Date: 20050119
  Transmission Date: 20050727
  Serious: Yes (Life-Threatening, Hospitalization)
  Sender: FDA-Public Use
  Company Number: CA-JNJFOC-20041101540

PATIENT
  Age: 54 Year
  Sex: Female
  Weight: 60 kg

DRUGS (9)
  1. REMICADE [Suspect]
     Route: 042
  2. REMICADE [Suspect]
     Indication: RHEUMATOID ARTHRITIS
     Dosage: 27TH INFUSION
     Route: 042
  3. METHOTREXATE [Concomitant]
     Route: 058
  4. AMITRYPTLINE [Concomitant]
     Dosage: 25-50 MG AT NIGHT FOR 5 YEARS OR MORE.
     Route: 049
  5. FOLIC ACID [Concomitant]
     Route: 049
  6. CELEBREX [Concomitant]
  7. CALCIUM CARBONATE [Concomitant]
  8. B 12 [Concomitant]
  9. B6 [Concomitant]

REACTIONS (2)
  - CEREBROVASCULAR ACCIDENT [None]
  - INTRACRANIAL ANEURYSM [None]
